FAERS Safety Report 10078452 (Version 3)
Quarter: 2014Q2

REPORT INFORMATION
  Report Type: Spontaneous
  Country: BR (occurrence: BR)
  Receive Date: 20140415
  Receipt Date: 20140522
  Transmission Date: 20141212
  Serious: Yes (Hospitalization, Other)
  Sender: FDA-Public Use
  Company Number: BR-AMGEN INC.-BRASP2014027207

PATIENT
  Age: 57 Year
  Sex: Female
  Weight: 85 kg

DRUGS (3)
  1. ENBREL [Suspect]
     Indication: RHEUMATOID ARTHRITIS
     Dosage: 50 MG, WEEKLY
     Route: 058
     Dates: start: 201312, end: 20140325
  2. CHLOROTHIAZIDE [Concomitant]
     Indication: HYPERTENSION
     Dosage: UNK
     Dates: start: 1994
  3. LOSARTAN [Concomitant]
     Indication: HYPERTENSION
     Dosage: UNK
     Dates: start: 201312

REACTIONS (8)
  - Swelling [Unknown]
  - Pain [Recovering/Resolving]
  - Pyrexia [Recovering/Resolving]
  - Joint effusion [Recovering/Resolving]
  - Synovitis [Recovering/Resolving]
  - Rheumatoid arthritis [Recovering/Resolving]
  - Infection [Recovering/Resolving]
  - Vasculitis [Recovering/Resolving]
